FAERS Safety Report 4948530-8 (Version None)
Quarter: 2006Q1

REPORT INFORMATION
  Report Type: 
  Country: None (occurrence: None)
  Receive Date: 20060313
  Receipt Date: 20060228
  Transmission Date: 20060701
  Serious: Yes (Hospitalization)
  Sender: FDA-Public Use
  Company Number: 2006030579

PATIENT
  Age: 52 Year
  Sex: Male

DRUGS (6)
  1. DOXORUBICIN (DOXORUBICIN) [Suspect]
     Indication: NON-HODGKIN'S LYMPHOMA
  2. CYCLOPHOSPHAMIDE [Suspect]
     Indication: NON-HODGKIN'S LYMPHOMA
  3. VINCRISTINE [Suspect]
     Indication: NON-HODGKIN'S LYMPHOMA
  4. RITUXIMAB (RITUXIMAB) [Suspect]
     Indication: NON-HODGKIN'S LYMPHOMA
  5. PEGFILGRASTIM (PEGFILGRASTIM) [Suspect]
     Indication: NON-HODGKIN'S LYMPHOMA
  6. PREDNISOLONE [Suspect]
     Indication: NON-HODGKIN'S LYMPHOMA

REACTIONS (3)
  - CRYPTOGENIC ORGANIZING PNEUMONIA [None]
  - NEUTROPENIA [None]
  - THERAPY NON-RESPONDER [None]
